FAERS Safety Report 8391564-4 (Version None)
Quarter: 2012Q2

REPORT INFORMATION
  Report Type: 
  Country: None (occurrence: None)
  Receive Date: 20120529
  Receipt Date: 20120522
  Transmission Date: 20120825
  Serious: Yes (Death, Other)
  Sender: FDA-Public Use
  Company Number: US-PFIZER INC-2012094766

PATIENT
  Sex: Female

DRUGS (2)
  1. AROMASIN [Suspect]
     Indication: BREAST CANCER
     Dosage: 25 MG, 1X/DAY
     Dates: start: 20111228
  2. AFINITOR [Suspect]
     Dosage: UNK

REACTIONS (13)
  - OCCULT BLOOD POSITIVE [None]
  - ASCITES [None]
  - WEIGHT DECREASED [None]
  - ASTHENIA [None]
  - CACHEXIA [None]
  - OEDEMA PERIPHERAL [None]
  - GASTROINTESTINAL HAEMORRHAGE [None]
  - DISEASE PROGRESSION [None]
  - BREAST CANCER [None]
  - HYPOCHROMIC ANAEMIA [None]
  - SERUM FERRITIN INCREASED [None]
  - ABDOMINAL DISTENSION [None]
  - APPETITE DISORDER [None]
